FAERS Safety Report 9510308 (Version 1)
Quarter: 2013Q3

REPORT INFORMATION
  Report Type: Spontaneous
  Country: US (occurrence: US)
  Receive Date: 20130909
  Receipt Date: 20130909
  Transmission Date: 20140515
  Serious: No
  Sender: FDA-Public Use
  Company Number: US-BRISTOL-MYERS SQUIBB COMPANY-17464538

PATIENT
  Sex: Female

DRUGS (2)
  1. ABILIFY [Suspect]
  2. VIIBRYD [Suspect]

REACTIONS (4)
  - Dizziness [Unknown]
  - Balance disorder [Unknown]
  - Fall [Recovered/Resolved]
  - Nervousness [Unknown]
